FAERS Safety Report 20690068 (Version 2)
Quarter: 2022Q2

REPORT INFORMATION
  Report Type: Spontaneous
  Country: US (occurrence: US)
  Receive Date: 20220408
  Receipt Date: 20220412
  Transmission Date: 20220721
  Serious: No
  Sender: FDA-Public Use
  Company Number: US-PFIZER INC-202200538066

PATIENT
  Age: 69 Year
  Sex: Male
  Weight: 74.84 kg

DRUGS (6)
  1. PAXLOVID [Suspect]
     Active Substance: NIRMATRELVIR\RITONAVIR
     Indication: COVID-19 treatment
     Dosage: 3 IN THE MORNING; 3 IN THE AFTERNOON; TAKE TWICE A DAY FOR 5 DAYS
     Dates: start: 20220405
  2. TAMSULOSIN [Concomitant]
     Active Substance: TAMSULOSIN
     Indication: Prostate cancer
     Dosage: 0.4MG CAPSULE ONE DAY
  3. FINASTERIDE [Concomitant]
     Active Substance: FINASTERIDE
     Indication: Prostate cancer
     Dosage: 5MG A DAY
  4. OMEPRAZOLE [Concomitant]
     Active Substance: OMEPRAZOLE
     Indication: Gastrooesophageal reflux disease
     Dosage: 20 MG, 1X/DAY
  5. VITAMIN D3 [Concomitant]
     Active Substance: CHOLECALCIFEROL
     Dosage: OCCASIONALLY
  6. MAGNESIUM [Concomitant]
     Active Substance: MAGNESIUM
     Dosage: EVERY DAY

REACTIONS (1)
  - Taste disorder [Unknown]

NARRATIVE: CASE EVENT DATE: 20220405
